FAERS Safety Report 9796373 (Version 3)
Quarter: 2014Q1

REPORT INFORMATION
  Report Type: Report from Study
  Country: TR (occurrence: TR)
  Receive Date: 20140103
  Receipt Date: 20140106
  Transmission Date: 20141002
  Serious: Yes (Other)
  Sender: FDA-Public Use
  Company Number: TR-PFIZER INC-2013343854

PATIENT
  Age: 56 Year
  Sex: Male
  Weight: 76 kg

DRUGS (6)
  1. CORDARONE [Suspect]
     Dosage: 200 MG, DAILY
     Route: 048
  2. ECOPIRIN [Suspect]
     Indication: ANTICOAGULANT THERAPY
     Dosage: 100 MG, DAILY
     Route: 065
  3. COUMADINE [Suspect]
     Dosage: 5 MG, DAILY
     Route: 048
  4. DIGOXIN [Suspect]
     Dosage: 0.25 MG, DAILY
     Route: 065
  5. RYTMONORM [Suspect]
     Dosage: 150 MG, DAILY
     Route: 065
  6. DILTIAZEM [Suspect]
     Dosage: 90 MG, DAILY
     Route: 065

REACTIONS (1)
  - Eye haemorrhage [Unknown]
